FAERS Safety Report 22597118 (Version 1)
Quarter: 2023Q2

REPORT INFORMATION
  Report Type: Report from Study
  Country: US (occurrence: US)
  Receive Date: 20230613
  Receipt Date: 20230613
  Transmission Date: 20230722
  Serious: Yes (Other)
  Sender: FDA-Public Use
  Company Number: US-TAKEDA-US202028420

PATIENT
  Sex: Female

DRUGS (1)
  1. HUMAN IMMUNOGLOBULIN G\HYALURONIDASE RECOMBINANT HUMAN [Suspect]
     Active Substance: HUMAN IMMUNOGLOBULIN G\HYALURONIDASE RECOMBINANT HUMAN
     Indication: Primary immunodeficiency syndrome
     Dosage: UNK
     Route: 065

REACTIONS (16)
  - Dementia [Unknown]
  - Headache [Unknown]
  - Vomiting [Unknown]
  - Lung disorder [Recovering/Resolving]
  - Somnolence [Unknown]
  - Illness [Unknown]
  - Pain [Unknown]
  - Tinnitus [Unknown]
  - COVID-19 [Unknown]
  - Weight increased [Unknown]
  - Pyrexia [Recovering/Resolving]
  - Blood pressure increased [Unknown]
  - Cough [Unknown]
  - Tremor [Unknown]
  - Diarrhoea [Unknown]
  - Incorrect product administration duration [Unknown]
